FAERS Safety Report 23515459 (Version 1)
Quarter: 2024Q1

REPORT INFORMATION
  Report Type: Spontaneous
  Country: CN (occurrence: CN)
  Receive Date: 20240213
  Receipt Date: 20240213
  Transmission Date: 20240409
  Serious: Yes (Death)
  Sender: FDA-Public Use
  Company Number: CN-SHANGHAI JUNSHI BIOSCIENCES CO., LTD.-CN2023008920

PATIENT

DRUGS (14)
  1. TORIPALIMAB [Suspect]
     Active Substance: TORIPALIMAB
     Indication: Hypopharyngeal cancer
     Dosage: 240 MG
     Route: 041
     Dates: start: 20231128
  2. TORIPALIMAB [Suspect]
     Active Substance: TORIPALIMAB
     Indication: Laryngeal cancer
     Dosage: 240 MG
     Route: 041
     Dates: start: 20231219
  3. TORIPALIMAB [Suspect]
     Active Substance: TORIPALIMAB
     Indication: Laryngeal squamous cell carcinoma
     Dosage: 240 MG
     Route: 041
  4. Huiyu [Concomitant]
     Indication: Hypopharyngeal cancer
     Dosage: 120 MG, D1
     Route: 041
     Dates: start: 20231128
  5. Huiyu [Concomitant]
     Indication: Laryngeal squamous cell carcinoma
  6. CISPLATIN [Concomitant]
     Active Substance: CISPLATIN
     Indication: Hypopharyngeal cancer
     Dosage: 40 MG, D1-D3
     Route: 041
     Dates: start: 20231128
  7. CISPLATIN [Concomitant]
     Active Substance: CISPLATIN
     Indication: Laryngeal squamous cell carcinoma
  8. DEXAMETHASONE [Concomitant]
     Active Substance: DEXAMETHASONE
     Indication: Symptomatic treatment
     Dosage: 6 MG, BID, D0-D2
     Route: 048
     Dates: start: 20231128
  9. Atuomolan [Concomitant]
     Indication: Symptomatic treatment
     Dosage: 1.8 MG, D1-D3
     Route: 041
  10. Ousai [Concomitant]
     Indication: Symptomatic treatment
     Dosage: 0.25 MG, D1-D3
     Route: 041
  11. VITAMIN B6 [Concomitant]
     Active Substance: PYRIDOXINE HYDROCHLORIDE
     Indication: Symptomatic treatment
     Dosage: 0.2 G, D1-D3
     Route: 041
  12. POTASSIUM CHLORIDE [Concomitant]
     Active Substance: POTASSIUM CHLORIDE
     Indication: Symptomatic treatment
     Dosage: 0.5 G, D1-D3
     Route: 041
  13. Triple Aosen [Concomitant]
     Indication: Symptomatic treatment
     Dosage: 40 MG, D1-D3
     Route: 041
  14. XIN RUI BAI [Concomitant]
     Indication: Prophylaxis
     Dosage: 3 MG
     Route: 058

REACTIONS (2)
  - Anaphylactic reaction [Fatal]
  - Off label use [Unknown]

NARRATIVE: CASE EVENT DATE: 20231219
